FAERS Safety Report 8842179 (Version 1)
Quarter: 2012Q4

REPORT INFORMATION
  Report Type: 
  Country: US (occurrence: None)
  Receive Date: 20121015
  Receipt Date: 20121015
  Transmission Date: 20130627
  Serious: Yes (Other)
  Sender: FDA-Public Use
  Company Number: None

PATIENT
  Age: 41 Year
  Sex: Female
  Weight: 71.67 kg

DRUGS (1)
  1. ADDERALL [Suspect]
     Indication: ADD
     Route: 048
     Dates: start: 20110826, end: 20110826

REACTIONS (3)
  - Migraine [None]
  - Product substitution issue [None]
  - Disease recurrence [None]
